FAERS Safety Report 22381376 (Version 1)
Quarter: 2023Q2

REPORT INFORMATION
  Report Type: Other
  Country: CA (occurrence: CA)
  Receive Date: 20230530
  Receipt Date: 20230530
  Transmission Date: 20230721
  Serious: Yes (Other)
  Sender: FDA-Public Use
  Company Number: CA-CELLTRION INC.-2023CA003633

PATIENT

DRUGS (4)
  1. ADALIMUMAB [Suspect]
     Active Substance: ADALIMUMAB
     Indication: Product used for unknown indication
     Dosage: 1.0 DOSAGE FORM
     Route: 058
  2. AMLODIPINE [Concomitant]
     Active Substance: AMLODIPINE BESYLATE
     Dosage: 1.0 DOSAGE FORM
  3. CALCIUM CARBONATE\CHOLECALCIFEROL [Concomitant]
     Active Substance: CALCIUM CARBONATE\CHOLECALCIFEROL
     Dosage: 1.0 DOSAGE FORM
  4. IRON SUCROSE [Concomitant]
     Active Substance: IRON SUCROSE
     Dosage: 1.0 DOSAGE FORM
     Route: 042

REACTIONS (6)
  - Vulvovaginal burning sensation [Unknown]
  - Anorectal discomfort [Unknown]
  - Movement disorder [Unknown]
  - Spinal fracture [Unknown]
  - Lung cancer metastatic [Unknown]
  - Abdominal pain [Unknown]
